FAERS Safety Report 6191695-3 (Version None)
Quarter: 2009Q2

REPORT INFORMATION
  Report Type: 
  Country: None (occurrence: None)
  Receive Date: 20090515
  Receipt Date: 20060803
  Transmission Date: 20091009
  Serious: Yes (Hospitalization)
  Sender: FDA-Public Use
  Company Number: PHHO2005JP08440

PATIENT
  Sex: Male

DRUGS (26)
  1. ICL670A ICL+DISTAB [Suspect]
     Indication: HAEMOSIDEROSIS
     Dosage: 250 MG DAILY
     Route: 048
     Dates: start: 20050524, end: 20050528
  2. ICL670A ICL+DISTAB [Suspect]
     Dosage: NO TREATMENT
  3. ICL670A ICL+DISTAB [Suspect]
     Dates: end: 20060508
  4. BONZOL [Concomitant]
     Dosage: 200 MG, UNK
     Route: 048
  5. GASTER [Concomitant]
     Dosage: 20 MG, UNK
     Route: 048
  6. PURSENNID [Concomitant]
     Dosage: 12 MG, UNK
     Route: 048
     Dates: end: 20050602
  7. LASIX [Concomitant]
     Dosage: 20 MG, UNK
     Route: 048
     Dates: start: 20050401, end: 20050607
  8. HALCION [Concomitant]
     Dosage: 0.25 MG, UNK
     Route: 048
     Dates: start: 20050401
  9. PYDOXAL [Concomitant]
     Dosage: 120 MG, UNK
     Route: 048
     Dates: start: 20050425, end: 20050601
  10. GASMOTIN [Concomitant]
     Dosage: 30 MG, UNK
     Route: 048
     Dates: end: 20050602
  11. LAXOBERON [Concomitant]
     Route: 048
     Dates: end: 20050527
  12. KETOPROFEN [Concomitant]
     Dates: end: 20050605
  13. PEON [Concomitant]
     Dosage: 100 MG, UNK
     Route: 048
     Dates: start: 20050524, end: 20050606
  14. FOIPAN [Concomitant]
     Dosage: 300 MG, UNK
     Route: 048
     Dates: start: 20050603
  15. ALOSITOL [Concomitant]
     Dosage: 200 MG, UNK
     Route: 048
     Dates: start: 20050604
  16. DEPAS [Concomitant]
     Route: 048
     Dates: start: 20050502
  17. BAKTAR [Concomitant]
     Route: 048
     Dates: start: 20050722
  18. PREDNISOLONE [Concomitant]
     Dosage: 15 MG, UNK
     Route: 048
  19. CATLEP [Concomitant]
     Route: 048
     Dates: start: 20050902
  20. TRANSFUSIONS [Concomitant]
  21. BONALON [Concomitant]
     Indication: MYELODYSPLASTIC SYNDROME
  22. UNIPHYL [Concomitant]
     Indication: EMPHYSEMA
  23. SEREVENT [Concomitant]
     Indication: EMPHYSEMA
  24. MUCOSTA [Concomitant]
     Indication: PROPHYLAXIS
  25. EURODIN [Concomitant]
     Indication: INSOMNIA
  26. PRIMOBOLAN [Concomitant]
     Indication: MYELODYSPLASTIC SYNDROME

REACTIONS (6)
  - ABDOMINAL PAIN [None]
  - ANOREXIA [None]
  - BLOOD AMYLASE INCREASED [None]
  - CHOLELITHIASIS [None]
  - PANCREATITIS ACUTE [None]
  - PYREXIA [None]
